FAERS Safety Report 24679652 (Version 6)
Quarter: 2025Q4

REPORT INFORMATION
  Report Type: Spontaneous
  Country: US (occurrence: US)
  Receive Date: 20241129
  Receipt Date: 20251017
  Transmission Date: 20260118
  Serious: No
  Sender: BRISTOL-MYERS SQUIBB COMPANY
  Company Number: US-BRISTOL-MYERS SQUIBB COMPANY-2024-186013

PATIENT
  Age: 81 Year
  Sex: Male

DRUGS (2)
  1. POMALYST [Suspect]
     Active Substance: POMALIDOMIDE
     Indication: Plasma cell myeloma
     Dosage: QD FOR 14 DAYS THEN 7 DAYS OFF
  2. POMALYST [Suspect]
     Active Substance: POMALIDOMIDE
     Dosage: QD FOR 14 DAYS THEN 7 DAYS OFF

REACTIONS (10)
  - Productive cough [Unknown]
  - Off label use [Unknown]
  - Insomnia [Not Recovered/Not Resolved]
  - Contusion [Unknown]
  - Upper respiratory tract infection [Unknown]
  - Hyperaesthesia [Unknown]
  - Hypoaesthesia [Recovered/Resolved]
  - Muscle tightness [Recovered/Resolved]
  - Skin burning sensation [Unknown]
  - Skin atrophy [Unknown]

NARRATIVE: CASE EVENT DATE: 20241113
